FAERS Safety Report 24634771 (Version 1)
Quarter: 2024Q4

REPORT INFORMATION
  Report Type: Spontaneous
  Country: US (occurrence: US)
  Receive Date: 20241119
  Receipt Date: 20241119
  Transmission Date: 20250115
  Serious: Yes (Other)
  Sender: COOPERSURGICAL
  Company Number: US-COOPERSURGICAL, INC.-2024CPS003459

PATIENT
  Age: 28 Year
  Sex: Female
  Weight: 48.073 kg

DRUGS (1)
  1. PARAGARD T 380A [Suspect]
     Active Substance: COPPER
     Indication: Contraception
     Dosage: UNK
     Route: 015
     Dates: start: 20140925, end: 20210625

REACTIONS (15)
  - Reproductive complication associated with device [Not Recovered/Not Resolved]
  - Hysterectomy [Recovered/Resolved]
  - Salpingectomy [Recovered/Resolved]
  - Protein S deficiency [Unknown]
  - Device breakage [Recovered/Resolved]
  - Foreign body in reproductive tract [Recovered/Resolved]
  - Complication of device removal [Recovered/Resolved]
  - Insomnia [Unknown]
  - Loss of personal independence in daily activities [Unknown]
  - Medical device site irritation [Recovered/Resolved]
  - Abdominal pain [Recovered/Resolved]
  - Abnormal uterine bleeding [Recovered/Resolved]
  - Pain [Recovered/Resolved]
  - Dizziness [Unknown]
  - Uterine cervical pain [Recovered/Resolved]

NARRATIVE: CASE EVENT DATE: 20180910
